FAERS Safety Report 5303679-5 (Version None)
Quarter: 2007Q2

REPORT INFORMATION
  Report Type: 
  Country: None (occurrence: None)
  Receive Date: 20070420
  Receipt Date: 20070413
  Transmission Date: 20071010
  Serious: Yes (Hospitalization, Other)
  Sender: FDA-Public Use
  Company Number: IE-PFIZER INC-2007004165

PATIENT
  Age: 72 Year
  Sex: Female

DRUGS (1)
  1. DETRUSITOL XL [Suspect]
     Indication: HYPERTONIC BLADDER
     Route: 048

REACTIONS (1)
  - FALL [None]
